FAERS Safety Report 8133031-9 (Version None)
Quarter: 2012Q1

REPORT INFORMATION
  Report Type: 
  Country: None (occurrence: None)
  Receive Date: 20120213
  Receipt Date: 20120206
  Transmission Date: 20120608
  Serious: Yes (Other)
  Sender: FDA-Public Use
  Company Number: PHHY2012NL010294

PATIENT
  Age: 37 Year
  Sex: Male

DRUGS (6)
  1. DEXAMETHASONE [Concomitant]
     Indication: PEMPHIGUS
  2. RITUXIMAB [Concomitant]
  3. DOXYCYCLINE [Concomitant]
     Indication: PEMPHIGUS
  4. MYCOPHENOLIC ACID [Suspect]
     Indication: PEMPHIGUS
     Dosage: 1440 MG, UNK
  5. PREDNISOLONE [Concomitant]
     Indication: PEMPHIGUS
     Dosage: 0.5 MG/KG, UNK
  6. METHOTREXATE [Concomitant]
     Dosage: 15 MG, DAILY

REACTIONS (2)
  - OSTEOPENIA [None]
  - THERAPEUTIC RESPONSE DECREASED [None]
